FAERS Safety Report 23391408 (Version 2)
Quarter: 2024Q1

REPORT INFORMATION
  Report Type: Report from Study
  Country: CA (occurrence: CA)
  Receive Date: 20240111
  Receipt Date: 20240117
  Transmission Date: 20240409
  Serious: Yes (Other)
  Sender: FDA-Public Use
  Company Number: CA-JNJFOC-20240112166

PATIENT
  Age: 35 Year
  Sex: Female

DRUGS (1)
  1. SIMPONI [Suspect]
     Active Substance: GOLIMUMAB
     Indication: Rheumatoid arthritis
     Route: 058
     Dates: start: 20231130

REACTIONS (6)
  - Dizziness [Recovered/Resolved]
  - Discomfort [Unknown]
  - Asthenia [Recovered/Resolved]
  - Fungal infection [Recovered/Resolved]
  - Immune system disorder [Unknown]
  - Hunger [Recovered/Resolved]
